FAERS Safety Report 7565402-3 (Version None)
Quarter: 2011Q2

REPORT INFORMATION
  Report Type: 
  Country: None (occurrence: None)
  Receive Date: 20110623
  Receipt Date: 20110613
  Transmission Date: 20111010
  Serious: No
  Sender: FDA-Public Use
  Company Number: US-BIOGENIDEC-2011BI021862

PATIENT
  Age: 49 Year
  Sex: Female

DRUGS (4)
  1. AVONEX [Concomitant]
     Indication: MULTIPLE SCLEROSIS
     Route: 030
  2. AVONEX [Concomitant]
     Route: 030
     Dates: start: 20030423
  3. TYSABRI [Suspect]
     Route: 042
     Dates: start: 20110611
  4. TYSABRI [Suspect]
     Indication: MULTIPLE SCLEROSIS
     Route: 042
     Dates: start: 20100823

REACTIONS (1)
  - NASOPHARYNGITIS [None]
